FAERS Safety Report 7930215-7 (Version None)
Quarter: 2011Q4

REPORT INFORMATION
  Report Type: 
  Country: None (occurrence: None)
  Receive Date: 20111118
  Receipt Date: 20111118
  Transmission Date: 20120403
  Serious: Yes (Hospitalization)
  Sender: FDA-Public Use
  Company Number: None

PATIENT
  Age: 72 Year
  Sex: Male
  Weight: 86.8 kg

DRUGS (2)
  1. CARVEDILOL [Suspect]
     Indication: HYPERTENSION
     Dosage: 6.25 MG BID PO
     Route: 048
     Dates: start: 20110501, end: 20111113
  2. DILTIAZEM HCL [Suspect]
     Indication: HYPERTENSION
     Dosage: 120 MG EVERY DAY PO
     Route: 048
     Dates: start: 20110501, end: 20111113

REACTIONS (2)
  - ATRIOVENTRICULAR BLOCK SECOND DEGREE [None]
  - BRADYCARDIA [None]
